FAERS Safety Report 19271273 (Version 3)
Quarter: 2021Q4

REPORT INFORMATION
  Report Type: Report from Study
  Country: CO (occurrence: CO)
  Receive Date: 20210518
  Receipt Date: 20211117
  Transmission Date: 20220303
  Serious: Yes (Disabling)
  Sender: FDA-Public Use
  Company Number: CO-TAKEDA-CO201945287

PATIENT
  Age: 55 Year
  Sex: Male
  Weight: 69 kg

DRUGS (6)
  1. ICATIBANT [Suspect]
     Active Substance: ICATIBANT ACETATE
     Indication: Hereditary angioedema
     Dosage: 30 MILLIGRAM/3 MILLILITER
     Route: 058
     Dates: start: 20190511
  2. ICATIBANT [Suspect]
     Active Substance: ICATIBANT ACETATE
     Indication: Hereditary angioedema
     Dosage: 30 MILLIGRAM/3 MILLILITER
     Route: 058
     Dates: start: 20190511
  3. ICATIBANT [Suspect]
     Active Substance: ICATIBANT ACETATE
     Dosage: 1 DOSAGE FORM
     Route: 058
     Dates: start: 20190511
  4. ICATIBANT [Suspect]
     Active Substance: ICATIBANT ACETATE
     Dosage: 1 DOSAGE FORM
     Route: 058
     Dates: start: 20190511
  5. TRANEXAMIC ACID [Concomitant]
     Active Substance: TRANEXAMIC ACID
     Indication: Product used for unknown indication
     Dosage: 500 MILLIGRAM, 3X/DAY:TID (EVERY 8 HOURS)
     Route: 048
  6. DANAZOL [Concomitant]
     Active Substance: DANAZOL
     Dosage: 200 MILLIGRAM,1 TABLET EVERY 48HRS
     Route: 065

REACTIONS (10)
  - Carpal tunnel syndrome [Not Recovered/Not Resolved]
  - Pain [Not Recovered/Not Resolved]
  - Limb injury [Recovering/Resolving]
  - Myalgia [Not Recovered/Not Resolved]
  - Asthenia [Not Recovered/Not Resolved]
  - Weight increased [Unknown]
  - Influenza [Not Recovered/Not Resolved]
  - Pyrexia [Not Recovered/Not Resolved]
  - Headache [Not Recovered/Not Resolved]
  - Erythema [Not Recovered/Not Resolved]

NARRATIVE: CASE EVENT DATE: 20191226
